FAERS Safety Report 8099814-9 (Version None)
Quarter: 2012Q1

REPORT INFORMATION
  Report Type: 
  Country: None (occurrence: None)
  Receive Date: 20120129
  Receipt Date: 20111005
  Transmission Date: 20120608
  Serious: No
  Sender: FDA-Public Use
  Company Number: US-ABBOTT-11P-163-0862560-00

PATIENT
  Sex: Female
  Weight: 90.8 kg

DRUGS (16)
  1. PHENAZOPYRIDINE HCL TAB [Concomitant]
     Indication: BLADDER SPASM
  2. TYLENOL W/ CODEINE NO. 3 [Concomitant]
     Indication: PAIN
  3. ETODOLAC [Concomitant]
     Indication: RHEUMATOID ARTHRITIS
  4. PREDNISONE TAB [Concomitant]
     Indication: RHEUMATOID ARTHRITIS
  5. FISH OIL [Concomitant]
     Indication: PRODUCT USED FOR UNKNOWN INDICATION
  6. MAGNESIUM [Concomitant]
     Indication: BLOOD MAGNESIUM DECREASED
  7. ALBUTEROL [Concomitant]
     Indication: ASTHMA
  8. HUMIRA [Suspect]
     Indication: RHEUMATOID ARTHRITIS
     Dates: start: 20110901
  9. CALCIUM CARBONATE [Concomitant]
     Indication: PRODUCT USED FOR UNKNOWN INDICATION
  10. PERCOCET [Concomitant]
     Indication: PAIN
  11. TOPAMAX [Concomitant]
     Indication: EPILEPSY
  12. FLEXERIL [Concomitant]
     Indication: MUSCLE SPASMS
  13. PLAQUENIL [Concomitant]
     Indication: PRODUCT USED FOR UNKNOWN INDICATION
  14. XANAX [Concomitant]
     Indication: ANXIETY
  15. PREMARIN [Concomitant]
     Indication: ENDOMETRIOSIS
  16. ZOLOFT [Concomitant]
     Indication: DEPRESSION

REACTIONS (4)
  - MOUTH ULCERATION [None]
  - PYREXIA [None]
  - DYSPHAGIA [None]
  - LYMPHADENOPATHY [None]
